FAERS Safety Report 15759068 (Version 1)
Quarter: 2018Q4

REPORT INFORMATION
  Report Type: Spontaneous
  Country: FR (occurrence: FR)
  Receive Date: 20181226
  Receipt Date: 20181226
  Transmission Date: 20190205
  Serious: Yes (Hospitalization, Other)
  Sender: FDA-Public Use
  Company Number: FR-ABBVIE-18K-056-2534647-00

PATIENT
  Age: 85 Year
  Sex: Male

DRUGS (6)
  1. METHOTREXATE. [Concomitant]
     Active Substance: METHOTREXATE
     Indication: RHEUMATOID ARTHRITIS
     Dates: end: 201808
  2. METHOTREXATE. [Concomitant]
     Active Substance: METHOTREXATE
     Dates: start: 20180910
  3. CORTANCYL [Concomitant]
     Active Substance: PREDNISONE
     Dates: start: 20180909
  4. HUMIRA [Suspect]
     Active Substance: ADALIMUMAB
     Indication: RHEUMATOID ARTHRITIS
     Route: 058
     Dates: start: 2009
  5. CORTANCYL [Concomitant]
     Active Substance: PREDNISONE
     Indication: RHEUMATOID ARTHRITIS
     Dates: end: 201808
  6. HUMIRA [Suspect]
     Active Substance: ADALIMUMAB
     Route: 058
     Dates: start: 200807, end: 201808

REACTIONS (9)
  - Arthralgia [Unknown]
  - Rib fracture [Unknown]
  - Pleural effusion [Unknown]
  - General physical health deterioration [Unknown]
  - Pulmonary tuberculosis [Not Recovered/Not Resolved]
  - Sensitivity to weather change [Unknown]
  - Fall [Recovered/Resolved]
  - Tuberculosis gastrointestinal [Unknown]
  - Pulmonary mass [Unknown]

NARRATIVE: CASE EVENT DATE: 201807
